FAERS Safety Report 22352092 (Version 1)
Quarter: 2023Q2

REPORT INFORMATION
  Report Type: Spontaneous
  Country: US (occurrence: US)
  Receive Date: 20230522
  Receipt Date: 20230522
  Transmission Date: 20230722
  Serious: No
  Sender: FDA-Public Use
  Company Number: US-PFIZER INC-PV202300087809

PATIENT
  Age: 66 Year
  Sex: Female

DRUGS (1)
  1. OXBRYTA [Suspect]
     Active Substance: VOXELOTOR
     Dosage: 1000 MG, DAILY
     Route: 048
     Dates: start: 20200521

REACTIONS (6)
  - Rash pruritic [Unknown]
  - Rash macular [Unknown]
  - Peripheral swelling [Unknown]
  - Thermal burn [Unknown]
  - Fatigue [Unknown]
  - Asthenia [Unknown]
